FAERS Safety Report 12386740 (Version 1)
Quarter: 2016Q2

REPORT INFORMATION
  Report Type: Spontaneous
  Country: SE (occurrence: SE)
  Receive Date: 20160519
  Receipt Date: 20160519
  Transmission Date: 20160815
  Serious: Yes (Hospitalization)
  Sender: FDA-Public Use
  Company Number: SE-PFIZER INC-2016261765

PATIENT
  Age: 19 Year
  Sex: Male

DRUGS (2)
  1. XANOR [Suspect]
     Active Substance: ALPRAZOLAM
     Dosage: 3 MG, UNK
     Dates: start: 20160423, end: 20160423
  2. OXYCODONE [Suspect]
     Active Substance: OXYCODONE
     Dosage: 140 MG, UNK
     Dates: start: 20160423, end: 20160423

REACTIONS (4)
  - Toxicity to various agents [Unknown]
  - Cyanosis [Recovered/Resolved]
  - Respiratory arrest [Recovered/Resolved]
  - Urinary retention [Unknown]

NARRATIVE: CASE EVENT DATE: 20160423
